FAERS Safety Report 8186864-7 (Version None)
Quarter: 2012Q1

REPORT INFORMATION
  Report Type: 
  Country: None (occurrence: None)
  Receive Date: 20120306
  Receipt Date: 20120227
  Transmission Date: 20120608
  Serious: Yes (Death)
  Sender: FDA-Public Use
  Company Number: CH-UCBSA-052350

PATIENT
  Sex: Female

DRUGS (1)
  1. CIMZIA [Suspect]
     Indication: RHEUMATIC FEVER
     Dosage: UNKNOWN DOSE
     Route: 058
     Dates: start: 20110919

REACTIONS (1)
  - MYOCARDIAL INFARCTION [None]
